FAERS Safety Report 8212670-0 (Version None)
Quarter: 2012Q1

REPORT INFORMATION
  Report Type: 
  Country: None (occurrence: None)
  Receive Date: 20120315
  Receipt Date: 20120306
  Transmission Date: 20120608
  Serious: Yes (Hospitalization, Other)
  Sender: FDA-Public Use
  Company Number: US-AMGEN-USASP2012014700

PATIENT
  Age: 76 Year
  Sex: Female

DRUGS (2)
  1. PLAQUENIL [Concomitant]
     Dosage: 2 MG, UNK
     Dates: start: 20111231
  2. ENBREL [Suspect]
     Indication: RHEUMATOID ARTHRITIS
     Dosage: 50 MG, QWK
     Dates: start: 20090301, end: 20110301

REACTIONS (9)
  - DYSPNOEA [None]
  - RHEUMATOID ARTHRITIS [None]
  - MUSCULOSKELETAL PAIN [None]
  - PAIN [None]
  - HEART RATE DECREASED [None]
  - PNEUMONIA [None]
  - AORTIC VALVE STENOSIS [None]
  - PULMONARY OEDEMA [None]
  - NECK PAIN [None]
